FAERS Safety Report 13326903 (Version 1)
Quarter: 2017Q1

REPORT INFORMATION
  Report Type: Spontaneous
  Country: CA (occurrence: CA)
  Receive Date: 20170312
  Receipt Date: 20170312
  Transmission Date: 20170428
  Serious: Yes (Disabling)
  Sender: FDA-Public Use
  Company Number: CA-TEVA-747757ACC

PATIENT
  Age: 60 Year
  Sex: Female
  Weight: 85.81 kg

DRUGS (1)
  1. TEVA-VENLAFAXINE XR [Suspect]
     Active Substance: VENLAFAXINE HYDROCHLORIDE
     Indication: MAJOR DEPRESSION
     Dosage: 300 MILLIGRAM DAILY;

REACTIONS (2)
  - Anxiety [Recovered/Resolved]
  - Hypersomnia [Recovered/Resolved]
